FAERS Safety Report 8191207-9 (Version None)
Quarter: 2012Q1

REPORT INFORMATION
  Report Type: 
  Country: None (occurrence: None)
  Receive Date: 20120307
  Receipt Date: 20120302
  Transmission Date: 20120608
  Serious: No
  Sender: FDA-Public Use
  Company Number: US-PFIZER INC-2012057172

PATIENT
  Sex: Female
  Weight: 77.098 kg

DRUGS (7)
  1. ATENOLOL [Concomitant]
     Indication: HYPERTENSION
     Dosage: 50 MG, DAILY
  2. LISINOPRIL [Concomitant]
     Indication: HYPERTENSION
     Dosage: 20 MG, DAILY
  3. PRAVASTATIN SODIUM [Concomitant]
     Indication: BLOOD CHOLESTEROL INCREASED
     Dosage: 20 MG, DAILY
  4. AMITRIPTYLINE [Concomitant]
     Dosage: 150 MG, DAILY
  5. NEURONTIN [Suspect]
     Indication: NEUROPATHY PERIPHERAL
     Dosage: 800 MG, 3X/DAY
     Dates: start: 20070101
  6. METFORMIN [Concomitant]
     Indication: DIABETES MELLITUS
     Dosage: 1000 MG, 2X/DAY
  7. IBUPROFEN [Suspect]
     Dosage: 800 MG, 3X/DAY
     Dates: end: 20090101

REACTIONS (1)
  - BLOOD TEST ABNORMAL [None]
